FAERS Safety Report 9907127 (Version 4)
Quarter: 2014Q4

REPORT INFORMATION
  Report Type: Spontaneous
  Country: FR (occurrence: FR)
  Receive Date: 20140218
  Receipt Date: 20141104
  Transmission Date: 20150529
  Serious: Yes (Hospitalization)
  Sender: FDA-Public Use
  Company Number: FR-TEVA-461302ISR

PATIENT
  Age: 54 Year
  Sex: Female

DRUGS (17)
  1. FLUOROURACILE [Suspect]
     Active Substance: FLUOROURACIL
     Route: 042
     Dates: start: 20131206
  2. METHYLPREDNISOLONE. [Suspect]
     Active Substance: METHYLPREDNISOLONE
     Route: 042
     Dates: start: 20131206
  3. DOXYCYCLINE. [Suspect]
     Active Substance: DOXYCYCLINE
     Dosage: 1 DOSAGE FORMS DAILY;
     Route: 048
     Dates: start: 201312
  4. HYDROXYZINE [Suspect]
     Active Substance: HYDROXYZINE\HYDROXYZINE HYDROCHLORIDE
     Dosage: 1 DOSAGE FORMS DAILY;
     Route: 042
     Dates: start: 201312
  5. ZOPHREN [Suspect]
     Active Substance: ONDANSETRON
     Dates: start: 20131206
  6. VOGALENE [Suspect]
     Active Substance: METOPIMAZINE
     Dosage: 3 DOSAGE FORMS DAILY;
     Route: 048
     Dates: start: 201312
  7. EMEND [Suspect]
     Active Substance: APREPITANT
     Route: 048
     Dates: start: 20131206
  8. PANTOPRAZOLE [Suspect]
     Active Substance: PANTOPRAZOLE SODIUM
     Dosage: 1 DOSAGE FORMS DAILY;
     Route: 042
     Dates: start: 201312
  9. TIORFAN 100MG [Suspect]
     Active Substance: RACECADOTRIL
     Dosage: 3 DOSAGE FORMS DAILY;
     Route: 048
     Dates: start: 20140103
  10. POLARAMINE [Suspect]
     Active Substance: DEXCHLORPHENIRAMINE MALEATE
     Route: 042
     Dates: start: 20131206
  11. NEFOPAM MYLAN 20MG/2ML [Suspect]
     Active Substance: NEFOPAM
     Dosage: 4 DOSAGE FORMS DAILY;
     Route: 042
     Dates: start: 201312
  12. CISPLATINE [Suspect]
     Active Substance: CISPLATIN
     Route: 042
     Dates: start: 20131206
  13. ERBITUX [Suspect]
     Active Substance: CETUXIMAB
     Route: 042
     Dates: start: 20131206
  14. TOPALGIC 100MG/2ML [Suspect]
     Active Substance: TRAMADOL
     Dosage: 3 DOSAGE FORMS DAILY;
     Route: 042
     Dates: start: 20140103
  15. SPASFON [Suspect]
     Active Substance: PHLOROGLUCINOL
     Dosage: 120 MILLIGRAM DAILY;
     Route: 042
     Dates: start: 201312
  16. SMECTA [Suspect]
     Active Substance: MONTMORILLONITE
     Dosage: 3 DOSAGE FORMS DAILY;
     Route: 048
     Dates: start: 201312
  17. OXYNORM [Suspect]
     Active Substance: OXYCODONE HYDROCHLORIDE
     Route: 042
     Dates: start: 201312

REACTIONS (2)
  - Lipase increased [Recovered/Resolved]
  - Pancreatitis acute [Unknown]

NARRATIVE: CASE EVENT DATE: 20140103
